FAERS Safety Report 15215633 (Version 1)
Quarter: 2018Q3

REPORT INFORMATION
  Report Type: Spontaneous
  Country: US (occurrence: US)
  Receive Date: 20180703
  Receipt Date: 20180703
  Transmission Date: 20181010
  Serious: Yes (Life-Threatening, Hospitalization)
  Sender: FDA-Public Use
  Company Number: None

PATIENT
  Age: 61 Year
  Sex: Male
  Weight: 94 kg

DRUGS (2)
  1. REGADENOSON [Suspect]
     Active Substance: REGADENOSON
     Indication: CARDIAC STRESS TEST
     Dosage: ?          OTHER FREQUENCY:ONCE;?
     Route: 040
     Dates: start: 20180108, end: 20180108
  2. THALLIUM [Concomitant]
     Active Substance: THALLIUM
     Dates: start: 20180108, end: 20180108

REACTIONS (8)
  - Drooling [None]
  - Pulse absent [None]
  - Cardiac arrest [None]
  - Dyspnoea [None]
  - Muscle rigidity [None]
  - Eye movement disorder [None]
  - Urinary incontinence [None]
  - Tremor [None]

NARRATIVE: CASE EVENT DATE: 20180108
